FAERS Safety Report 8553769-9 (Version None)
Quarter: 2012Q3

REPORT INFORMATION
  Report Type: 
  Country: None (occurrence: None)
  Receive Date: 20120731
  Receipt Date: 20120724
  Transmission Date: 20120928
  Serious: Yes (Other)
  Sender: FDA-Public Use
  Company Number: FR-GLAXOSMITHKLINE-B0818444A

PATIENT
  Age: 50 Year
  Sex: Female

DRUGS (7)
  1. IRBESARTAN [Concomitant]
     Route: 065
  2. CHONDROSULF [Concomitant]
     Route: 065
  3. ALLOPURINOL [Concomitant]
     Route: 065
  4. VALACYCLOVIR HYDROCHLORIDE [Suspect]
     Indication: PROPHYLAXIS
     Route: 048
     Dates: start: 20110701
  5. ESBERIVEN [Concomitant]
     Route: 065
  6. DYNABAC [Concomitant]
     Route: 065
  7. STRESAM [Concomitant]
     Route: 065

REACTIONS (1)
  - PANCREATITIS [None]
